FAERS Safety Report 12793894 (Version 1)
Quarter: 2016Q3

REPORT INFORMATION
  Report Type: Spontaneous
  Country: US (occurrence: US)
  Receive Date: 20160929
  Receipt Date: 20160929
  Transmission Date: 20161109
  Serious: No
  Sender: FDA-Public Use
  Company Number: US-JAZZ-2016-US-011948

PATIENT
  Sex: Female

DRUGS (34)
  1. LORAZEPAM. [Concomitant]
     Active Substance: LORAZEPAM
  2. MEDROL [Concomitant]
     Active Substance: METHYLPREDNISOLONE
  3. XYREM [Suspect]
     Active Substance: SODIUM OXYBATE
     Indication: NARCOLEPSY
     Dosage: 2.25 G, BID
     Dates: start: 200910, end: 200911
  4. ENBREL [Concomitant]
     Active Substance: ETANERCEPT
  5. SULINDAC. [Concomitant]
     Active Substance: SULINDAC
  6. WELCHOL [Concomitant]
     Active Substance: COLESEVELAM HYDROCHLORIDE
  7. MILK OF MAGNESIA [Concomitant]
     Active Substance: MAGNESIUM HYDROXIDE
  8. LYRICA [Concomitant]
     Active Substance: PREGABALIN
  9. ZYRTEC [Concomitant]
     Active Substance: CETIRIZINE HYDROCHLORIDE
  10. SUCRALFATE. [Concomitant]
     Active Substance: SUCRALFATE
  11. VICODIN [Concomitant]
     Active Substance: ACETAMINOPHEN\HYDROCODONE BITARTRATE
  12. FLUOXETINE HCL [Concomitant]
     Active Substance: FLUOXETINE HYDROCHLORIDE
  13. GABAPENTIN. [Concomitant]
     Active Substance: GABAPENTIN
  14. LEVOCETIRIZINE [Concomitant]
     Active Substance: LEVOCETIRIZINE
  15. ZOFRAN [Concomitant]
     Active Substance: ONDANSETRON HYDROCHLORIDE
  16. REPLENEX [Concomitant]
  17. PROMETHAZINE [Concomitant]
     Active Substance: PROMETHAZINE\PROMETHAZINE HYDROCHLORIDE
  18. VERAMYST [Concomitant]
     Active Substance: FLUTICASONE FUROATE
  19. HYDROXYCHLOROQUINE [Concomitant]
     Active Substance: HYDROXYCHLOROQUINE
  20. XYREM [Suspect]
     Active Substance: SODIUM OXYBATE
     Indication: CATAPLEXY
     Dosage: DOSE ADJUSTMENTS
     Route: 048
     Dates: start: 200911, end: 201209
  21. RITUXAN [Concomitant]
     Active Substance: RITUXIMAB
  22. MALIC ACID [Concomitant]
     Active Substance: MALIC ACID
  23. PERCOCET [Concomitant]
     Active Substance: ACETAMINOPHEN\OXYCODONE HYDROCHLORIDE
  24. XYREM [Suspect]
     Active Substance: SODIUM OXYBATE
     Dosage: 4 G, BID
     Route: 048
     Dates: start: 201209
  25. SAVELLA [Concomitant]
     Active Substance: MILNACIPRAN HYDROCHLORIDE
  26. NATTOKINASE [Concomitant]
     Active Substance: NATTOKINASE
  27. MSM [Concomitant]
     Active Substance: DIMETHYL SULFONE
  28. CITALOPRAM [Concomitant]
     Active Substance: CITALOPRAM HYDROBROMIDE
  29. METHOTREXATE. [Concomitant]
     Active Substance: METHOTREXATE
  30. PRILOSEC [Concomitant]
     Active Substance: OMEPRAZOLE MAGNESIUM
  31. PROTONIX [Concomitant]
     Active Substance: PANTOPRAZOLE SODIUM
  32. VITAMIN D3 [Concomitant]
     Active Substance: CHOLECALCIFEROL
  33. FLUCONAZOLE. [Concomitant]
     Active Substance: FLUCONAZOLE
  34. ZOLPIDEM TARTRATE. [Concomitant]
     Active Substance: ZOLPIDEM TARTRATE

REACTIONS (1)
  - Infection [Unknown]
